FAERS Safety Report 19124380 (Version 1)
Quarter: 2021Q2

REPORT INFORMATION
  Report Type: Spontaneous
  Country: US (occurrence: US)
  Receive Date: 20210412
  Receipt Date: 20210412
  Transmission Date: 20210717
  Serious: No
  Sender: FDA-Public Use
  Company Number: NVSC2020US349396

PATIENT
  Age: 59 Year
  Sex: Male

DRUGS (4)
  1. MEKINIST [Suspect]
     Active Substance: TRAMETINIB DIMETHYL SULFOXIDE
     Indication: BRAF V600E MUTATION POSITIVE
     Dosage: UNK
     Route: 065
     Dates: start: 202005
  2. MEKINIST [Suspect]
     Active Substance: TRAMETINIB DIMETHYL SULFOXIDE
     Indication: PAPILLARY THYROID CANCER
  3. TAFINLAR [Suspect]
     Active Substance: DABRAFENIB MESYLATE
     Indication: PAPILLARY THYROID CANCER
  4. TAFINLAR [Suspect]
     Active Substance: DABRAFENIB MESYLATE
     Indication: BRAF V600E MUTATION POSITIVE
     Dosage: 150 MG, BID (STRENGTH: 150/75 MG)
     Route: 065
     Dates: start: 202005

REACTIONS (1)
  - Dysphagia [Unknown]
